FAERS Safety Report 9012088 (Version 3)
Quarter: 2013Q3

REPORT INFORMATION
  Report Type: Spontaneous
  Country: CN (occurrence: CN)
  Receive Date: 20130114
  Receipt Date: 20130824
  Transmission Date: 20140515
  Serious: Yes (Hospitalization, Disabling)
  Sender: FDA-Public Use
  Company Number: CN-ROCHE-1178403

PATIENT
  Age: 51 Year
  Sex: Female
  Weight: 59 kg

DRUGS (3)
  1. AVASTIN [Suspect]
     Indication: GASTROINTESTINAL CARCINOMA
     Route: 041
     Dates: start: 201206, end: 201212
  2. GLUTATHIONE [Concomitant]
  3. AMMONIUM GLYCYRRHIZINATE [Concomitant]

REACTIONS (3)
  - Intestinal fistula [Recovering/Resolving]
  - Anorectal disorder [Recovering/Resolving]
  - Disease progression [Not Recovered/Not Resolved]
